FAERS Safety Report 4682883-3 (Version None)
Quarter: 2005Q2

REPORT INFORMATION
  Report Type: 
  Country: None (occurrence: None)
  Receive Date: 20050531
  Receipt Date: 20041121
  Transmission Date: 20051028
  Serious: Yes (Other)
  Sender: FDA-Public Use
  Company Number: 200419037US

PATIENT
  Age: 83 Year
  Sex: Male

DRUGS (4)
  1. LOVENOX [Suspect]
     Indication: DEEP VEIN THROMBOSIS
     Dosage: 100 MG QD SC
     Route: 058
     Dates: start: 20041109
  2. LOVENOX [Suspect]
     Indication: KNEE ARTHROPLASTY
     Dosage: 100 MG QD SC
     Route: 058
     Dates: start: 20041109
  3. PLAVIX [Concomitant]
  4. WARFARIN [Concomitant]

REACTIONS (5)
  - DIFFICULTY IN WALKING [None]
  - OEDEMA PERIPHERAL [None]
  - PAIN IN EXTREMITY [None]
  - SKIN DISCOLOURATION [None]
  - VASCULAR OCCLUSION [None]
